FAERS Safety Report 8028927-2 (Version None)
Quarter: 2012Q1

REPORT INFORMATION
  Report Type: 
  Country: None (occurrence: None)
  Receive Date: 20120106
  Receipt Date: 20120105
  Transmission Date: 20120608
  Serious: Yes (Other)
  Sender: FDA-Public Use
  Company Number: CA-BAYER-2012-001308

PATIENT
  Age: 81 Year
  Sex: Female
  Weight: 77.098 kg

DRUGS (1)
  1. NAPROXEN (ALEVE) [Suspect]
     Dosage: 220 MG, QD
     Route: 048

REACTIONS (6)
  - COUGH [None]
  - FLUID RETENTION [None]
  - ANAPHYLACTIC REACTION [None]
  - BLOOD PRESSURE INCREASED [None]
  - DISEASE PROGRESSION [None]
  - ASTHMA [None]
